FAERS Safety Report 5202251-5 (Version None)
Quarter: 2006Q4

REPORT INFORMATION
  Report Type: 
  Country: None (occurrence: None)
  Receive Date: 20061003
  Receipt Date: 20060825
  Transmission Date: 20070319
  Serious: Yes (Other)
  Sender: FDA-Public Use
  Company Number: US-JNJFOC-20060806111

PATIENT
  Age: 82 Year
  Sex: Female
  Weight: 90.7194 kg

DRUGS (3)
  1. ULTRAM SR [Suspect]
     Indication: ARTHRITIS
     Dosage: 300 MG, 1 IN 1 DAY, ORAL
     Route: 048
     Dates: end: 20060821
  2. DARVON (TABLET) DEXTROPROPOXYPHENE HYDROCHLORIDE [Concomitant]
  3. TICLID [Concomitant]

REACTIONS (1)
  - DRUG WITHDRAWAL SYNDROME [None]
